FAERS Safety Report 8777301 (Version 3)
Quarter: 2013Q4

REPORT INFORMATION
  Report Type: Spontaneous
  Country: US (occurrence: US)
  Receive Date: 20120910
  Receipt Date: 20131127
  Transmission Date: 20140711
  Serious: Yes (Hospitalization, Disabling, Other)
  Sender: FDA-Public Use
  Company Number: US-ASTRAZENECA-2012SE47578

PATIENT
  Age: 18372 Day
  Sex: Female
  Weight: 69 kg

DRUGS (12)
  1. NEXIUM [Suspect]
     Indication: GASTROOESOPHAGEAL REFLUX DISEASE
     Route: 048
     Dates: start: 2011
  2. LISINOPRIL [Suspect]
     Indication: HYPERTENSION
     Route: 048
     Dates: start: 201103
  3. SYMBICORT PMDI [Suspect]
     Indication: LYMPHANGIOLEIOMYOMATOSIS
     Dosage: 80/4.5 MCG, TWO PUFFS BID
     Route: 055
     Dates: start: 20111227
  4. SYMBICORT PMDI [Suspect]
     Indication: LYMPHANGIOLEIOMYOMATOSIS
     Dosage: 160/4.5 MCG, TWO PUFFS BID
     Route: 055
     Dates: start: 201201
  5. ADVAIR [Concomitant]
  6. SYNTHYROID [Concomitant]
     Indication: HYPOTHYROIDISM
     Route: 048
  7. MONTELUKAST [Concomitant]
     Indication: LYMPHANGIOLEIOMYOMATOSIS
     Route: 048
  8. ALBUTEROL [Concomitant]
     Indication: LYMPHANGIOLEIOMYOMATOSIS
     Dosage: 1.25MG/3ML PRN
     Route: 055
  9. XOPENEX [Concomitant]
     Indication: PROPHYLAXIS
     Dosage: PRN
     Route: 055
  10. RAPAMUNE [Concomitant]
     Indication: LYMPHANGIOLEIOMYOMATOSIS
     Route: 048
  11. GABAPENTIN [Concomitant]
     Indication: CHEST PAIN
     Route: 048
  12. ALPRAZOLAM [Concomitant]
     Indication: INSOMNIA
     Dosage: HS
     Route: 048

REACTIONS (11)
  - Pneumothorax [Recovered/Resolved]
  - Lymphangioleiomyomatosis [Unknown]
  - Pneumothorax [Recovered/Resolved]
  - Dyspnoea [Unknown]
  - Hypertension [Not Recovered/Not Resolved]
  - Lung disorder [Not Recovered/Not Resolved]
  - Blood cholesterol increased [Not Recovered/Not Resolved]
  - Fatigue [Unknown]
  - Depression [Not Recovered/Not Resolved]
  - Intentional drug misuse [Not Recovered/Not Resolved]
  - Off label use [Unknown]
